FAERS Safety Report 4720673-3 (Version None)
Quarter: 2005Q3

REPORT INFORMATION
  Report Type: 
  Country: None (occurrence: None)
  Receive Date: 20050719
  Receipt Date: 20050708
  Transmission Date: 20060218
  Serious: Yes (Hospitalization, Other)
  Sender: FDA-Public Use
  Company Number: KII-2005-0017435

PATIENT
  Age: 43 Year
  Sex: Female

DRUGS (3)
  1. OXYCONTIN [Suspect]
     Indication: CANCER PAIN
     Dosage: INTRAVENOUS
     Route: 042
  2. FENTANYL [Suspect]
     Indication: CANCER PAIN
     Dosage: TRANSDERMAL
     Route: 062
  3. BENZODIAZEPINE DERIVATIVES () [Suspect]
     Indication: DRUG USE FOR UNKNOWN INDICATION
     Dosage: SEE TEXT, ORAL
     Route: 048

REACTIONS (9)
  - APNOEA [None]
  - COMA [None]
  - HEART RATE DECREASED [None]
  - HYPOTENSION [None]
  - INTENTIONAL MISUSE [None]
  - MIOSIS [None]
  - POLYSUBSTANCE ABUSE [None]
  - RESPIRATORY RATE DECREASED [None]
  - SOMNOLENCE [None]
